FAERS Safety Report 9725425 (Version 2)
Quarter: 2014Q1

REPORT INFORMATION
  Report Type: Spontaneous
  Country: US (occurrence: US)
  Receive Date: 20131203
  Receipt Date: 20140106
  Transmission Date: 20141002
  Serious: Yes (Other)
  Sender: FDA-Public Use
  Company Number: US-CELGENEUS-163-50794-13115876

PATIENT
  Sex: Male

DRUGS (3)
  1. VIDAZA [Suspect]
     Indication: MYELODYSPLASTIC SYNDROME
     Route: 065
  2. DACOGEN [Concomitant]
     Indication: MYELODYSPLASTIC SYNDROME
     Route: 065
  3. BLOOD [Concomitant]
     Indication: PRODUCT USED FOR UNKNOWN INDICATION
     Dosage: 2 UNITS
     Route: 041

REACTIONS (3)
  - Aortic valve stenosis [Unknown]
  - Platelet count decreased [Unknown]
  - Neutropenia [Unknown]
